FAERS Safety Report 8232463-8 (Version None)
Quarter: 2012Q1

REPORT INFORMATION
  Report Type: 
  Country: None (occurrence: None)
  Receive Date: 20120323
  Receipt Date: 20120309
  Transmission Date: 20120608
  Serious: Yes (Hospitalization)
  Sender: FDA-Public Use
  Company Number: FR-PURDUE-GBR-2012-0009984

PATIENT
  Sex: Female

DRUGS (8)
  1. COVERAM [Suspect]
     Indication: HYPERTENSION
     Dosage: 1 DF, DAILY
     Route: 048
  2. TANGANIL                           /00129601/ [Concomitant]
     Dosage: 500 MG, BID
     Dates: end: 20120210
  3. ACETAMINOPHEN [Concomitant]
     Dosage: 2 DF, TID
     Route: 048
  4. OXYCODONE HYDROCHLORIDE [Suspect]
     Indication: CANCER PAIN
     Dosage: UNK
     Route: 048
     Dates: end: 20120210
  5. OXYCODONE HCL [Suspect]
     Indication: CANCER PAIN
     Dosage: 20 MG, BID
     Route: 048
     Dates: end: 20120210
  6. LEVOTHYROXINE SODIUM [Concomitant]
     Indication: HYPOTHYROIDISM
     Dosage: 50 MCG, BID
     Route: 048
  7. ASPIRIN [Concomitant]
     Dosage: 75 MG, DAILY
     Route: 048
  8. NEXIUM [Concomitant]
     Dosage: 40 MG, DAILY
     Route: 048

REACTIONS (7)
  - FAECALOMA [None]
  - FALL [None]
  - PYELONEPHRITIS [None]
  - HAEMATOMA [None]
  - HYPOTENSION [None]
  - MUSCULOSKELETAL PAIN [None]
  - ESCHERICHIA URINARY TRACT INFECTION [None]
